FAERS Safety Report 4750087-1 (Version None)
Quarter: 2005Q3

REPORT INFORMATION
  Report Type: 
  Country: None (occurrence: None)
  Receive Date: 20050822
  Receipt Date: 20050808
  Transmission Date: 20060218
  Serious: Yes (Other)
  Sender: FDA-Public Use
  Company Number: 2005112857

PATIENT
  Age: 70 Year
  Sex: Male
  Weight: 73 kg

DRUGS (3)
  1. INSPRA [Suspect]
     Indication: HYPOKALAEMIA
     Dosage: SEE IMAGE
     Route: 048
     Dates: start: 20050607, end: 20050621
  2. INSPRA [Suspect]
     Indication: HYPOKALAEMIA
     Dosage: SEE IMAGE
     Route: 048
     Dates: start: 20050301
  3. ARAVA [Concomitant]

REACTIONS (2)
  - BLOOD CREATINE INCREASED [None]
  - RENAL FAILURE ACUTE [None]
